FAERS Safety Report 12690213 (Version 1)
Quarter: 2016Q3

REPORT INFORMATION
  Report Type: Spontaneous
  Country: US (occurrence: US)
  Receive Date: 20160826
  Receipt Date: 20160826
  Transmission Date: 20161109
  Serious: Yes (Life-Threatening)
  Sender: FDA-Public Use
  Company Number: US-DEPOMED, INC.-US-2016DEP011761

PATIENT
  Age: 2 Month
  Weight: 3.8 kg

DRUGS (3)
  1. FENTANYL. [Suspect]
     Active Substance: FENTANYL
     Indication: SEDATIVE THERAPY
     Dosage: 0.5 ?G/KG, UNK
  2. FENTANYL. [Suspect]
     Active Substance: FENTANYL
     Dosage: 1 ?G/KG, UNK
  3. MIDAZOLAM [Concomitant]
     Active Substance: MIDAZOLAM\MIDAZOLAM HYDROCHLORIDE
     Indication: SEDATIVE THERAPY
     Dosage: 0.05 MG/KG, UNK

REACTIONS (2)
  - Respiratory failure [Recovered/Resolved]
  - Muscle rigidity [Recovered/Resolved]
